FAERS Safety Report 5106178-9 (Version None)
Quarter: 2006Q3

REPORT INFORMATION
  Report Type: 
  Country: None (occurrence: None)
  Receive Date: 20060912
  Receipt Date: 20060808
  Transmission Date: 20061208
  Serious: Yes (Other)
  Sender: FDA-Public Use
  Company Number: 2006083600

PATIENT
  Age: 28 Year
  Sex: Female

DRUGS (2)
  1. CABERGOLINE [Suspect]
     Indication: HYPERPROLACTINAEMIA
     Dosage: 0.25 MG (0.25 MG, 1 IN 1WK), UNKNOWN
     Dates: start: 20060508, end: 20060821
  2. GASMOTIN (MOSAPRIDE CITRATE) [Suspect]
     Indication: STOMACH DISCOMFORT
     Dosage: 15 MG (3 IN 1 D); ORAL
     Route: 048
     Dates: start: 20060508

REACTIONS (4)
  - HAEMORRHAGE SUBCUTANEOUS [None]
  - INCREASED TENDENCY TO BRUISE [None]
  - PLATELET COUNT DECREASED [None]
  - PROTHROMBIN TIME PROLONGED [None]
